FAERS Safety Report 18211814 (Version 2)
Quarter: 2020Q3

REPORT INFORMATION
  Report Type: Spontaneous
  Country: FR (occurrence: FR)
  Receive Date: 20200831
  Receipt Date: 20200908
  Transmission Date: 20201103
  Serious: Yes (Life-Threatening, Hospitalization)
  Sender: FDA-Public Use
  Company Number: FR-CADILA HEALTHCARE LIMITED-FR-ZYDUS-023544

PATIENT

DRUGS (6)
  1. BROMAZEPAM [Suspect]
     Active Substance: BROMAZEPAM
     Indication: SUICIDE ATTEMPT
     Dosage: 320 MILLIGRAM,IN TOTAL,(INTERVAL :1 TOTAL)
     Route: 048
     Dates: start: 20180102, end: 20180102
  2. DEPAKOTE [Concomitant]
     Active Substance: DIVALPROEX SODIUM
     Indication: PRODUCT USED FOR UNKNOWN INDICATION
     Dosage: 3 DOSAGE FORM,250 MG, GASTRO RESISTANT TABLET,(INTERVAL :1 DAYS)
     Route: 048
  3. THERALENE [Suspect]
     Active Substance: TRIMEPRAZINE
     Indication: SUICIDE ATTEMPT
     Dosage: UNKNOWN DOSE, IN TOTAL,(INTERVAL :1 TOTAL)
     Route: 048
     Dates: start: 20180102, end: 20180102
  4. PAROXETINE. [Suspect]
     Active Substance: PAROXETINE
     Indication: SUICIDE ATTEMPT
     Dosage: 20 DOSAGE FORM,UNKNOWN DOSE, IN TOTAL,(INTERVAL :1 TOTAL)
     Route: 048
     Dates: start: 20180102, end: 20180102
  5. LYSANXIA [Concomitant]
     Active Substance: PRAZEPAM
     Indication: PRODUCT USED FOR UNKNOWN INDICATION
     Dosage: 4 DOSAGE FORM,10 MG TABLET,(INTERVAL :1 DAYS)
     Route: 048
  6. DEPAMIDE [Suspect]
     Active Substance: VALPROMIDE
     Indication: SUICIDE ATTEMPT
     Dosage: 24 DOSAGE FORM,IN TOTAL, 300 MG, GASTRO RESISTANT FILM COATED TABLET,(INTERVAL :1 TOTAL)
     Route: 048
     Dates: start: 20180102, end: 20180102

REACTIONS (3)
  - Hypovolaemic shock [Recovered/Resolved]
  - Hyperlactacidaemia [Recovered/Resolved]
  - Hypothermia [Recovered/Resolved]

NARRATIVE: CASE EVENT DATE: 20180102
